FAERS Safety Report 25277006 (Version 1)
Quarter: 2025Q2

REPORT INFORMATION
  Report Type: Spontaneous
  Country: US (occurrence: US)
  Receive Date: 20250507
  Receipt Date: 20250507
  Transmission Date: 20250716
  Serious: No
  Sender: ROCHE
  Company Number: US-ROCHE-10000274268

PATIENT
  Sex: Female

DRUGS (3)
  1. XOLAIR PFS [Suspect]
     Active Substance: OMALIZUMAB
     Indication: Idiopathic urticaria
     Dosage: 150MG/ML
     Route: 058
     Dates: start: 202502
  2. XOLAIR PFS [Suspect]
     Active Substance: OMALIZUMAB
  3. BIMZELX [Suspect]
     Active Substance: BIMEKIZUMAB-BKZX
     Indication: Product used for unknown indication
     Dosage: 2 PEN EVERY 4 WEEKS FOR 16 WEEKS THEN 2 PENS EVERY 8 WEEKS THEREAFTER.
     Route: 058

REACTIONS (1)
  - Vomiting [Unknown]
